FAERS Safety Report 14334389 (Version 4)
Quarter: 2018Q2

REPORT INFORMATION
  Report Type: Spontaneous
  Country: US (occurrence: US)
  Receive Date: 20171228
  Receipt Date: 20180621
  Transmission Date: 20180711
  Serious: Yes (Life-Threatening, Hospitalization)
  Sender: FDA-Public Use
  Company Number: US-ACTELION-A-NJ2017-164862

PATIENT
  Age: 60 Year
  Sex: Female

DRUGS (1)
  1. OPSUMIT [Suspect]
     Active Substance: MACITENTAN
     Indication: PULMONARY ARTERIAL HYPERTENSION
     Dosage: 10 MG, QD
     Route: 048
     Dates: start: 20150401

REACTIONS (5)
  - Fungal infection [Unknown]
  - Dyspnoea [Unknown]
  - Treatment noncompliance [Unknown]
  - Pneumonia [Unknown]
  - Lung transplant [Unknown]

NARRATIVE: CASE EVENT DATE: 20180517
